FAERS Safety Report 4873522-7 (Version None)
Quarter: 2006Q1

REPORT INFORMATION
  Report Type: 
  Country: None (occurrence: None)
  Receive Date: 20060105
  Receipt Date: 20051228
  Transmission Date: 20060701
  Serious: Yes (Hospitalization)
  Sender: FDA-Public Use
  Company Number: FR-MERCK-0601USA00109

PATIENT
  Age: 66 Year
  Sex: Female

DRUGS (3)
  1. ZOCOR [Suspect]
     Route: 048
  2. ADVIL [Suspect]
     Route: 048
  3. OROCAL [Concomitant]
     Route: 048

REACTIONS (6)
  - ANAEMIA [None]
  - COAGULATION FACTOR X LEVEL DECREASED [None]
  - EPISTAXIS [None]
  - HAEMORRHAGE [None]
  - PROTHROMBIN LEVEL DECREASED [None]
  - PURPURA [None]
